FAERS Safety Report 8460965-8 (Version None)
Quarter: 2012Q2

REPORT INFORMATION
  Report Type: 
  Country: None (occurrence: None)
  Receive Date: 20120625
  Receipt Date: 20120613
  Transmission Date: 20120825
  Serious: No
  Sender: FDA-Public Use
  Company Number: US-BIOGENIDEC-2012BI020956

PATIENT
  Age: 43 Year
  Sex: Male

DRUGS (2)
  1. TYSABRI [Suspect]
     Indication: MULTIPLE SCLEROSIS
     Route: 042
     Dates: start: 20090604, end: 20100308
  2. TYSABRI [Suspect]
     Route: 042
     Dates: start: 20120213

REACTIONS (4)
  - FALL [None]
  - GAIT DISTURBANCE [None]
  - LACERATION [None]
  - MUSCULOSKELETAL STIFFNESS [None]
